FAERS Safety Report 7917979-3 (Version None)
Quarter: 2011Q4

REPORT INFORMATION
  Report Type: 
  Country: None (occurrence: None)
  Receive Date: 20111116
  Receipt Date: 20111107
  Transmission Date: 20120403
  Serious: Yes (Other)
  Sender: FDA-Public Use
  Company Number: US-BAYER-2011-107906

PATIENT
  Sex: Female

DRUGS (1)
  1. YASMIN [Suspect]
     Dosage: UNK
     Dates: start: 20060101, end: 20080101

REACTIONS (6)
  - GALLBLADDER DISORDER [None]
  - ANHEDONIA [None]
  - INJURY [None]
  - ANXIETY [None]
  - PAIN [None]
  - POST CHOLECYSTECTOMY SYNDROME [None]
